FAERS Safety Report 9999706 (Version 1)
Quarter: 2014Q1

REPORT INFORMATION
  Report Type: Spontaneous
  Country: US (occurrence: US)
  Receive Date: 20140312
  Receipt Date: 20140312
  Transmission Date: 20141002
  Serious: No
  Sender: FDA-Public Use
  Company Number: US-BAYER-2014-037416

PATIENT
  Age: 17 Year
  Sex: Female

DRUGS (1)
  1. GADAVIST [Suspect]
     Indication: NUCLEAR MAGNETIC RESONANCE IMAGING BRAIN
     Dosage: 5 MG, ONCE
     Route: 051
     Dates: start: 20140303, end: 20140303

REACTIONS (2)
  - Eye swelling [None]
  - Hypoaesthesia eye [None]
